FAERS Safety Report 5174727-0 (Version None)
Quarter: 2006Q4

REPORT INFORMATION
  Report Type: 
  Country: None (occurrence: None)
  Receive Date: 20061206
  Receipt Date: 20061123
  Transmission Date: 20070319
  Serious: Yes (Hospitalization, Other)
  Sender: FDA-Public Use
  Company Number: 2006145129

PATIENT
  Sex: Male

DRUGS (2)
  1. LYRICA [Suspect]
     Dosage: 3000 MG, ORAL
     Route: 048
  2. PARALGIN FORTE (CODEINE PHOSPHATE, PARACETAMOL) [Concomitant]

REACTIONS (4)
  - DRUG DEPENDENCE [None]
  - DRUG TOLERANCE [None]
  - DRUG TOXICITY [None]
  - INTENTIONAL OVERDOSE [None]
